FAERS Safety Report 10245983 (Version 1)
Quarter: 2014Q2

REPORT INFORMATION
  Report Type: Spontaneous
  Country: NZ (occurrence: NZ)
  Receive Date: 20140619
  Receipt Date: 20140619
  Transmission Date: 20141212
  Serious: Yes (Other)
  Sender: FDA-Public Use
  Company Number: PHHY2014NZ074415

PATIENT
  Age: 18 Year
  Sex: Female

DRUGS (10)
  1. IMATINIB [Suspect]
     Indication: ACUTE LYMPHOCYTIC LEUKAEMIA
     Dosage: 400 MG, PER DAY
  2. IMATINIB [Suspect]
     Dosage: 600 MG, PER DAY
  3. IMATINIB [Suspect]
     Dosage: 150 MG, PER DAY
  4. VINCRISTINE [Suspect]
     Indication: ACUTE LYMPHOCYTIC LEUKAEMIA
  5. DEXAMETHASONE [Suspect]
     Indication: ACUTE LYMPHOCYTIC LEUKAEMIA
  6. COTRIMOXAZOLE [Concomitant]
  7. ACYCLOVIR [Concomitant]
  8. ETHINYLESTRADIOL [Concomitant]
  9. LEVONORGESTREL [Concomitant]
  10. CALCIFEROL [Concomitant]

REACTIONS (6)
  - Pseudoporphyria [Recovered/Resolved]
  - Skin fragility [Recovered/Resolved]
  - Blister [Recovered/Resolved]
  - Skin erosion [Recovered/Resolved]
  - Acute lymphocytic leukaemia recurrent [Unknown]
  - Ascites [Recovered/Resolved]
